FAERS Safety Report 10437301 (Version 1)
Quarter: 2014Q3

REPORT INFORMATION
  Report Type: Spontaneous
  Country: US (occurrence: US)
  Receive Date: 20140908
  Receipt Date: 20140908
  Transmission Date: 20150326
  Serious: No
  Sender: FDA-Public Use
  Company Number: US-BRISTOL-MYERS SQUIBB COMPANY-19647965

PATIENT
  Age: 45 Year
  Sex: Female
  Weight: 61.22 kg

DRUGS (3)
  1. ABILIFY [Suspect]
     Active Substance: ARIPIPRAZOLE
     Indication: DEPRESSION
     Dosage: 1DF=5MG
     Dates: start: 201305
  2. CLONAZEPAM. [Concomitant]
     Active Substance: CLONAZEPAM
  3. AMBIEN [Concomitant]
     Active Substance: ZOLPIDEM TARTRATE

REACTIONS (3)
  - Weight increased [Unknown]
  - Increased appetite [Unknown]
  - Tremor [Unknown]
